FAERS Safety Report 17764521 (Version 3)
Quarter: 2023Q2

REPORT INFORMATION
  Report Type: Spontaneous
  Country: DE (occurrence: DE)
  Receive Date: 20200511
  Receipt Date: 20230619
  Transmission Date: 20230721
  Serious: Yes (Life-Threatening, Other)
  Sender: FDA-Public Use
  Company Number: DE-002147023-NVSC2020DE118096

PATIENT
  Sex: Female
  Weight: 130 kg

DRUGS (2)
  1. SERTRALINE [Suspect]
     Active Substance: SERTRALINE HYDROCHLORIDE
     Indication: Product used for unknown indication
     Dosage: UNK
     Route: 065
     Dates: start: 201804
  2. METHYLPHENIDATE [Suspect]
     Active Substance: METHYLPHENIDATE
     Indication: Product used for unknown indication
     Dosage: UNK
     Route: 065
     Dates: start: 201712

REACTIONS (3)
  - Venous thrombosis [Recovering/Resolving]
  - Erythema [Recovering/Resolving]
  - Superficial vein prominence [Recovering/Resolving]

NARRATIVE: CASE EVENT DATE: 20191205
